FAERS Safety Report 6145741-3 (Version None)
Quarter: 2009Q2

REPORT INFORMATION
  Report Type: 
  Country: None (occurrence: None)
  Receive Date: 20090407
  Receipt Date: 20090330
  Transmission Date: 20091009
  Serious: Yes (Other)
  Sender: FDA-Public Use
  Company Number: DE-AMGEN-US332923

PATIENT
  Sex: Female
  Weight: 2.29 kg

DRUGS (2)
  1. ENBREL [Suspect]
     Indication: RHEUMATOID ARTHRITIS
     Route: 064
     Dates: end: 20080401
  2. ENBREL [Suspect]
     Indication: POLYARTHRITIS

REACTIONS (2)
  - HYPOGLYCAEMIA NEONATAL [None]
  - PREMATURE BABY [None]
